FAERS Safety Report 7193953-2 (Version None)
Quarter: 2010Q4

REPORT INFORMATION
  Report Type: 
  Country: None (occurrence: None)
  Receive Date: 20101124
  Receipt Date: 20100922
  Transmission Date: 20110411
  Serious: No
  Sender: FDA-Public Use
  Company Number: 016927

PATIENT
  Sex: Female
  Weight: 77 kg

DRUGS (4)
  1. LACOSAMIDE [Suspect]
     Indication: CONVULSION
     Dosage: (100 MG BID ORAL)
     Route: 048
     Dates: start: 20091001
  2. TAPAZOLE [Suspect]
     Indication: BASEDOW'S DISEASE
     Dosage: (1 PILL) ; (DOSE REDUCED)
  3. DIOVAN [Concomitant]
  4. PROPRANOLOL [Concomitant]

REACTIONS (9)
  - BLOOD PRESSURE INCREASED [None]
  - CHEST DISCOMFORT [None]
  - DYSPHONIA [None]
  - DYSPNOEA [None]
  - MUSCLE FATIGUE [None]
  - MUSCLE TIGHTNESS [None]
  - PANIC ATTACK [None]
  - SLEEP DISORDER [None]
  - THROAT TIGHTNESS [None]
